FAERS Safety Report 5983088-6 (Version None)
Quarter: 2008Q4

REPORT INFORMATION
  Report Type: 
  Country: None (occurrence: None)
  Receive Date: 20081208
  Receipt Date: 20081128
  Transmission Date: 20090506
  Serious: Yes (Hospitalization)
  Sender: FDA-Public Use
  Company Number: FR-AVENTIS-200814221FR

PATIENT
  Age: 85 Year
  Sex: Female

DRUGS (12)
  1. LASIX [Suspect]
     Route: 048
     Dates: start: 20070404
  2. RENITEC                            /00574901/ [Suspect]
     Route: 048
     Dates: start: 20070404, end: 20071024
  3. EFFERALGAN                         /00020001/ [Concomitant]
     Indication: PAIN
     Route: 048
     Dates: start: 20080529, end: 20081025
  4. KARDEGIC                           /00002703/ [Concomitant]
     Indication: DRUG USE FOR UNKNOWN INDICATION
     Route: 048
     Dates: start: 20070401, end: 20081024
  5. GAVISCON [Concomitant]
     Indication: DRUG USE FOR UNKNOWN INDICATION
     Route: 048
     Dates: start: 20070404, end: 20081024
  6. MOVICOL                            /01053601/ [Concomitant]
     Indication: DRUG USE FOR UNKNOWN INDICATION
     Route: 048
     Dates: start: 20070404, end: 20081024
  7. THERALENE [Concomitant]
     Indication: AGITATION
     Route: 048
     Dates: start: 20070404, end: 20081024
  8. ATHYMIL [Concomitant]
     Route: 048
     Dates: start: 20070503, end: 20081024
  9. OROCAL                             /00108001/ [Concomitant]
     Indication: OSTEOPOROSIS
     Route: 048
     Dates: start: 20070404, end: 20081024
  10. STEROGYL                           /00765501/ [Concomitant]
     Indication: OSTEOPOROSIS
     Route: 048
     Dates: start: 20070404, end: 20081024
  11. CARVEDILOL [Concomitant]
     Route: 048
     Dates: start: 20070404, end: 20081024
  12. SMECTA                             /01255901/ [Concomitant]
     Indication: DRUG USE FOR UNKNOWN INDICATION
     Route: 048
     Dates: start: 20080604, end: 20081024

REACTIONS (3)
  - DRUG INTERACTION [None]
  - HYPERKALAEMIA [None]
  - RENAL FAILURE ACUTE [None]
